FAERS Safety Report 25953852 (Version 2)
Quarter: 2025Q4

REPORT INFORMATION
  Report Type: Spontaneous
  Country: EU (occurrence: EU)
  Receive Date: 20251023
  Receipt Date: 20251029
  Transmission Date: 20260117
  Serious: Yes (Hospitalization, Other)
  Sender: PFIZER
  Company Number: None

PATIENT
  Age: 48 Year
  Sex: Female

DRUGS (1)
  1. TUCATINIB [Suspect]
     Active Substance: TUCATINIB
     Indication: Breast cancer metastatic
     Dosage: 300 MG/DAY CONTINUOUSLY
     Route: 048
     Dates: start: 20250624

REACTIONS (6)
  - Pancreatitis acute [Unknown]
  - Biliary tract disorder [Unknown]
  - Condition aggravated [Unknown]
  - Hepatotoxicity [Recovered/Resolved]
  - Hypertransaminasaemia [Recovered/Resolved]
  - Biliary fistula [Recovered/Resolved]

NARRATIVE: CASE EVENT DATE: 20250826
